FAERS Safety Report 6305521-2 (Version None)
Quarter: 2009Q3

REPORT INFORMATION
  Report Type: 
  Country: None (occurrence: None)
  Receive Date: 20090807
  Receipt Date: 20090724
  Transmission Date: 20100115
  Serious: Yes (Hospitalization, Other)
  Sender: FDA-Public Use
  Company Number: 2006AP000463

PATIENT
  Age: 22 Year
  Sex: Male

DRUGS (8)
  1. PRAVASTATIN SODIUM [Suspect]
     Indication: HEART TRANSPLANT
     Dosage: 40 MG;PO, QD
     Route: 048
  2. CYCLOSPORINE [Suspect]
     Indication: HEART TRANSPLANT
  3. CYCLOSPORINE [Suspect]
     Indication: IMMUNOSUPPRESSION
  4. ASPIRIN [Concomitant]
  5. AZATHIOPRINE [Concomitant]
  6. FUROSEMIDE [Concomitant]
  7. PREDNISOLONE [Concomitant]
  8. RAMIPRIL [Concomitant]

REACTIONS (8)
  - BLOOD CREATININE INCREASED [None]
  - DRUG INTERACTION [None]
  - FIBRIN D DIMER INCREASED [None]
  - OEDEMA [None]
  - OEDEMA PERIPHERAL [None]
  - RENAL IMPAIRMENT [None]
  - RHABDOMYOLYSIS [None]
  - TENDERNESS [None]
